FAERS Safety Report 17119522 (Version 1)
Quarter: 2019Q4

REPORT INFORMATION
  Report Type: Spontaneous
  Country: IT (occurrence: IT)
  Receive Date: 20191206
  Receipt Date: 20191206
  Transmission Date: 20200122
  Serious: Yes (Other)
  Sender: FDA-Public Use
  Company Number: IT-TEVA-2019-IT-1147215

PATIENT
  Age: 61 Year
  Sex: Female

DRUGS (8)
  1. OMEPRAZEN 10 MG CAPSULE RIGIDE GASTRORESISTENTI [Concomitant]
  2. TRIATEC 10 MG COMPRESSE [Concomitant]
     Active Substance: RAMIPRIL
  3. TOTALIP 40 MG COMPRESSE RIVESTITE CON FILM [Concomitant]
  4. DOBETIN [Concomitant]
  5. GEMCITABINE. [Suspect]
     Active Substance: GEMCITABINE
     Indication: LUNG NEOPLASM MALIGNANT
     Dosage: 1650 MG
     Route: 042
     Dates: start: 20190515, end: 20190718
  6. CISPLATIN. [Suspect]
     Active Substance: CISPLATIN
     Indication: LUNG NEOPLASM MALIGNANT
     Dosage: 1258 MG
     Route: 042
     Dates: start: 20190515, end: 20190718
  7. METFORMIN [Concomitant]
     Active Substance: METFORMIN HYDROCHLORIDE
     Dosage: 500 MG
  8. CARDIOASPIRIN 100 MG COMPRESSE GASTRORESISTENTI [Concomitant]
     Active Substance: ASPIRIN

REACTIONS (2)
  - Renal failure [Recovering/Resolving]
  - Dehydration [Recovering/Resolving]

NARRATIVE: CASE EVENT DATE: 20190718
